FAERS Safety Report 5844497-9 (Version None)
Quarter: 2008Q3

REPORT INFORMATION
  Report Type: 
  Country: None (occurrence: None)
  Receive Date: 20080811
  Receipt Date: 20080729
  Transmission Date: 20090109
  Serious: Yes (Hospitalization, Other)
  Sender: FDA-Public Use
  Company Number: 2005JP000465

PATIENT
  Age: 56 Year
  Sex: Male

DRUGS (6)
  1. PROGRAF [Suspect]
     Indication: RENAL TRANSPLANT
     Dosage: 2 MG /D, ORAL
     Route: 048
  2. CELLCEPT [Suspect]
     Dosage: 1000 MG, /D, ORAL; 2500 D/, ORAL
     Route: 048
     Dates: end: 20030527
  3. CELLCEPT [Suspect]
     Dosage: 1000 MG, /D, ORAL; 2500 D/, ORAL
     Route: 048
     Dates: start: 20020201
  4. METHYLPREDNISOLONE [Concomitant]
  5. CEFTAZIDMIDE (CEFTAZIDMIDE) [Concomitant]
  6. GANCICLOVIR [Concomitant]

REACTIONS (6)
  - CYTOMEGALOVIRUS CHORIORETINITIS [None]
  - DRUG INEFFECTIVE [None]
  - NECROTISING RETINITIS [None]
  - PNEUMONIA CRYPTOCOCCAL [None]
  - PNEUMONIA PNEUMOCOCCAL [None]
  - RETINAL DETACHMENT [None]
